FAERS Safety Report 5929923-9 (Version None)
Quarter: 2008Q4

REPORT INFORMATION
  Report Type: 
  Country: None (occurrence: None)
  Receive Date: 20081024
  Receipt Date: 20081010
  Transmission Date: 20090506
  Serious: Yes (Hospitalization)
  Sender: FDA-Public Use
  Company Number: AU-GENENTECH-260727

PATIENT
  Sex: Female

DRUGS (6)
  1. BEVACIZUMAB [Suspect]
     Indication: BREAST CANCER METASTATIC
     Dosage: UNK ML/KG, Q3W
     Route: 042
     Dates: start: 20080118
  2. GEMCITABINE [Suspect]
     Indication: BREAST CANCER
     Dosage: 1786 MG, UNK
     Route: 042
     Dates: start: 20080118
  3. PACLITAXEL [Concomitant]
     Indication: BREAST CANCER
     Dosage: 312 MG, UNK
     Route: 042
     Dates: start: 20080118
  4. CANDESARTAN CILEXETIL [Concomitant]
     Indication: DRUG USE FOR UNKNOWN INDICATION
     Dosage: UNK
     Dates: start: 20081009
  5. NORVASC [Concomitant]
     Indication: DRUG USE FOR UNKNOWN INDICATION
     Dosage: UNK
     Dates: start: 20080216
  6. SOMAC [Concomitant]

REACTIONS (1)
  - THROMBOTIC THROMBOCYTOPENIC PURPURA [None]
